FAERS Safety Report 25557841 (Version 2)
Quarter: 2025Q3

REPORT INFORMATION
  Report Type: Spontaneous
  Country: JP (occurrence: JP)
  Receive Date: 20250715
  Receipt Date: 20250819
  Transmission Date: 20251020
  Serious: Yes (Other)
  Sender: PFIZER
  Company Number: JP-PFIZER INC-202500141708

PATIENT

DRUGS (1)
  1. LORBRENA [Suspect]
     Active Substance: LORLATINIB
     Indication: Lung neoplasm malignant

REACTIONS (1)
  - Cardiac dysfunction [Unknown]
